FAERS Safety Report 16023163 (Version 1)
Quarter: 2019Q1

REPORT INFORMATION
  Report Type: Spontaneous
  Country: JP (occurrence: JP)
  Receive Date: 20190301
  Receipt Date: 20190301
  Transmission Date: 20190418
  Serious: Yes (Other)
  Sender: FDA-Public Use
  Company Number: JP-PFIZER INC-2019086404

PATIENT

DRUGS (3)
  1. DEPAKENE [VALPROATE SODIUM] [Concomitant]
     Dosage: 300 MG, 2X/DAY
  2. LANDSEN [Concomitant]
     Active Substance: CLONAZEPAM
     Dosage: 1 MG, 3X/DAY
  3. GABAPEN [Suspect]
     Active Substance: GABAPENTIN
     Dosage: 200 MG, 3X/DAY

REACTIONS (1)
  - Renal impairment [Unknown]
